FAERS Safety Report 12457260 (Version 1)
Quarter: 2016Q2

REPORT INFORMATION
  Report Type: Report from Study
  Country: DE (occurrence: MX)
  Receive Date: 20160610
  Receipt Date: 20160610
  Transmission Date: 20160815
  Serious: Yes (Hospitalization)
  Sender: FDA-Public Use
  Company Number: DE-ACTELION-A-NJ2016-137633

PATIENT
  Age: 82 Year
  Sex: Female

DRUGS (1)
  1. VENTAVIS [Suspect]
     Active Substance: ILOPROST
     Indication: PRODUCT USED FOR UNKNOWN INDICATION
     Dosage: UNK
     Route: 055
     Dates: start: 20160402

REACTIONS (6)
  - Hypoaesthesia [Recovering/Resolving]
  - Loss of consciousness [Recovering/Resolving]
  - Capillary nail refill test abnormal [Not Recovered/Not Resolved]
  - Peripheral coldness [Recovering/Resolving]
  - Superficial vein prominence [Recovering/Resolving]
  - Epistaxis [Recovering/Resolving]

NARRATIVE: CASE EVENT DATE: 20160402
